FAERS Safety Report 23765625 (Version 1)
Quarter: 2024Q2

REPORT INFORMATION
  Report Type: Spontaneous
  Country: US (occurrence: US)
  Receive Date: 20240421
  Receipt Date: 20240421
  Transmission Date: 20240717
  Serious: No
  Sender: FDA-Public Use
  Company Number: US-PRINSTON PHARMACEUTICAL INC.-2024PRN00045

PATIENT
  Sex: Female

DRUGS (1)
  1. CLONIDINE HYDROCHLORIDE [Suspect]
     Active Substance: CLONIDINE HYDROCHLORIDE
     Indication: Nightmare
     Dosage: UNK

REACTIONS (4)
  - Formication [Unknown]
  - Nightmare [Unknown]
  - Pruritus [Unknown]
  - Drug ineffective for unapproved indication [Recovered/Resolved]
